FAERS Safety Report 13822218 (Version 7)
Quarter: 2017Q4

REPORT INFORMATION
  Report Type: Report from Study
  Country: DE (occurrence: DE)
  Receive Date: 20170801
  Receipt Date: 20171030
  Transmission Date: 20180320
  Serious: Yes (Hospitalization)
  Sender: FDA-Public Use
  Company Number: DE-ROCHE-1938044

PATIENT
  Age: 63 Year
  Sex: Female
  Weight: 77.4 kg

DRUGS (18)
  1. PANTOPRAZOL [Concomitant]
     Active Substance: PANTOPRAZOLE SODIUM
     Indication: DYSPEPSIA
     Route: 065
     Dates: start: 20160804
  2. DIMETINDENE [Concomitant]
     Active Substance: DIMETHINDENE
     Indication: ALLERGY PROPHYLAXIS
     Route: 065
     Dates: start: 20160804
  3. CETIRIZIN [Concomitant]
     Active Substance: CETIRIZINE HYDROCHLORIDE
     Indication: RHINITIS ALLERGIC
     Route: 065
     Dates: start: 20170413
  4. VALSARTAN. [Concomitant]
     Active Substance: VALSARTAN
     Indication: HYPERTENSION
  5. CARBOPLATIN. [Suspect]
     Active Substance: CARBOPLATIN
     Indication: NON-SMALL CELL LUNG CANCER STAGE IV
     Dosage: AREA UNDER THE CONCENTRATION-TIME CURVE (AUC) 6 MILLIGRAMS PER MILLILITER PER MINUTE (MG/ML/MIN) ON
     Route: 042
     Dates: start: 20160804
  6. LAXOBERAL [Concomitant]
     Active Substance: SODIUM PICOSULFATE
     Indication: CONSTIPATION
     Route: 065
     Dates: start: 20161208
  7. PREGABALIN. [Concomitant]
     Active Substance: PREGABALIN
     Indication: HYPERTENSION
     Route: 065
     Dates: start: 20170209
  8. ATEZOLIZUMAB. [Suspect]
     Active Substance: ATEZOLIZUMAB
     Indication: NON-SMALL CELL LUNG CANCER STAGE IV
     Dosage: -MOST RECENT DOSE ON 04/MAY/2017 PRIOR TO INCREASED LIPASE AND FRACTURE OF THE RIBS?-ON 13/APR/2017,
     Route: 042
     Dates: start: 20160804
  9. BEVACIZUMAB. [Suspect]
     Active Substance: BEVACIZUMAB
     Indication: NON-SMALL CELL LUNG CANCER STAGE IV
     Dosage: -MOST RECENT DOSE (1150 MG) OF BEVACIZUMAB 04/MAY/2017 PRIOR TO INCREASED LIPASE AND FRACTURE OF THE
     Route: 042
     Dates: start: 20160804
  10. PACLITAXEL. [Suspect]
     Active Substance: PACLITAXEL
     Indication: NON-SMALL CELL LUNG CANCER STAGE IV
     Dosage: FREQUENCY- DAY 1 OF EACH 21-DAY CYCLE FOR 4 OR 6 CYCLES (DOSE AND FREQUENCY AS PER PROTOCOL).?DOSE O
     Route: 042
     Dates: start: 20160804
  11. DILTIAZEM. [Concomitant]
     Active Substance: DILTIAZEM
     Indication: ANAL FISSURE
     Route: 065
     Dates: start: 20170726
  12. GRANISETRON [Concomitant]
     Active Substance: GRANISETRON
     Indication: PROPHYLAXIS OF NAUSEA AND VOMITING
     Route: 065
     Dates: start: 20160804
  13. LIDOCAIN [Concomitant]
     Active Substance: LIDOCAINE
     Indication: ANAL FISSURE
     Route: 065
     Dates: start: 20170726
  14. AMLODIPIN [Concomitant]
     Active Substance: AMLODIPINE BESYLATE
     Indication: HYPERTENSION
     Route: 065
     Dates: start: 20170209
  15. BISOPROLOL [Concomitant]
     Active Substance: BISOPROLOL
     Indication: HYPERTENSION
  16. RANITIDIN [Concomitant]
     Active Substance: RANITIDINE HYDROCHLORIDE
     Indication: PROPHYLAXIS
     Route: 065
     Dates: start: 20160804
  17. HYDROCHLOROTHIAZIDE. [Concomitant]
     Active Substance: HYDROCHLOROTHIAZIDE
     Indication: HYPERTENSION
  18. NOVALGIN [Concomitant]
     Active Substance: METAMIZOLE SODIUM
     Route: 065
     Dates: start: 20161208

REACTIONS (3)
  - Lipase increased [Not Recovered/Not Resolved]
  - Diarrhoea [Recovered/Resolved]
  - Rib fracture [Recovered/Resolved with Sequelae]

NARRATIVE: CASE EVENT DATE: 20170416
